FAERS Safety Report 8090014-5 (Version None)
Quarter: 2012Q1

REPORT INFORMATION
  Report Type: 
  Country: None (occurrence: None)
  Receive Date: 20120129
  Receipt Date: 20111003
  Transmission Date: 20120608
  Serious: No
  Sender: FDA-Public Use
  Company Number: US-ABBOTT-11P-163-0860060-00

PATIENT
  Sex: Female
  Weight: 92.616 kg

DRUGS (9)
  1. HUMIRA [Suspect]
     Indication: CROHN'S DISEASE
     Dates: start: 20110917, end: 20110917
  2. PENTASA [Concomitant]
     Indication: CROHN'S DISEASE
  3. UNKNOWN MEDICATION [Concomitant]
     Indication: INSOMNIA
  4. CITALOPRAM [Concomitant]
     Indication: DEPRESSION
  5. HYDROCODONE BITARTRATE [Concomitant]
     Indication: PAIN
  6. HUMIRA [Suspect]
     Dates: start: 20111002, end: 20111002
  7. METOPROLOL TARTRATE [Concomitant]
     Indication: CARDIAC VALVE DISEASE
  8. UNKNOWN MEDICATION [Concomitant]
     Indication: SLEEP APNOEA SYNDROME
  9. PREDNISONE TAB [Concomitant]
     Indication: CROHN'S DISEASE

REACTIONS (3)
  - INJECTION SITE PAIN [None]
  - INJECTION SITE HAEMORRHAGE [None]
  - DEVICE MALFUNCTION [None]
